FAERS Safety Report 14964586 (Version 4)
Quarter: 2020Q1

REPORT INFORMATION
  Report Type: Report from Study
  Country: JP (occurrence: JP)
  Receive Date: 20180601
  Receipt Date: 20200309
  Transmission Date: 20200409
  Serious: Yes (Hospitalization)
  Sender: FDA-Public Use
  Company Number: JP-CELGENEUS-JPN-20180507948

PATIENT
  Age: 79 Year
  Sex: Male
  Weight: 54.8 kg

DRUGS (45)
  1. KETOPROFEN. [Concomitant]
     Active Substance: KETOPROFEN
     Indication: CHEST PAIN
     Dosage: 40 MILLIGRAM
     Route: 065
     Dates: start: 20170518, end: 20170620
  2. LOPERAMIDE [Concomitant]
     Active Substance: LOPERAMIDE
     Indication: DIARRHOEA
     Dosage: 1 MILLIGRAM
     Route: 048
     Dates: start: 20170605, end: 20170706
  3. SODIUM LACTATE. [Concomitant]
     Active Substance: SODIUM LACTATE
     Indication: ENDOSCOPIC ULTRASOUND
     Route: 065
  4. EDOXABAN TOSYLATE [Concomitant]
     Active Substance: EDOXABAN TOSYLATE
     Indication: ATRIAL FIBRILLATION
     Dosage: 30 MILLIGRAM
     Route: 065
     Dates: start: 20170405
  5. SENNOSIDES. [Concomitant]
     Active Substance: SENNOSIDES
     Indication: ENEMA ADMINISTRATION
     Route: 065
  6. SODIUM BICARBONATE. [Concomitant]
     Active Substance: SODIUM BICARBONATE
     Indication: FLATULENCE
     Route: 065
  7. ABRAXANE [Suspect]
     Active Substance: PACLITAXEL
     Indication: NON-SMALL CELL LUNG CANCER METASTATIC
     Dosage: 100 MILLIGRAM/SQ. METER
     Route: 041
     Dates: start: 20170601, end: 20170601
  8. ENEVO [Concomitant]
     Indication: DECREASED APPETITE
     Dosage: 250 MILLILITER
     Route: 048
     Dates: start: 20170529
  9. ALENDRONATE SODIUM. [Concomitant]
     Active Substance: ALENDRONATE SODIUM
     Indication: FRACTURE
     Route: 065
  10. DEXAMETHASONE SODIUM PHOSPHATE. [Concomitant]
     Active Substance: DEXAMETHASONE SODIUM PHOSPHATE
     Indication: NAUSEA
     Route: 065
  11. MALTOSE [Concomitant]
     Active Substance: MALTOSE
     Indication: ENDOSCOPIC ULTRASOUND
     Route: 065
  12. SODIUM ACETATE. [Concomitant]
     Active Substance: SODIUM ACETATE
     Indication: DECREASED APPETITE
     Route: 065
  13. ABRAXANE [Suspect]
     Active Substance: PACLITAXEL
     Dosage: 100 MILLIGRAM/SQ. METER
     Route: 041
     Dates: start: 20170608, end: 20170608
  14. MAGNESIUM OXIDE. [Concomitant]
     Active Substance: MAGNESIUM OXIDE
     Indication: CONSTIPATION
     Dosage: 330 MILLIGRAM
     Route: 048
     Dates: start: 20170424
  15. KETOPROFEN. [Concomitant]
     Active Substance: KETOPROFEN
     Indication: COUGH
  16. SUVOREXANT. [Concomitant]
     Active Substance: SUVOREXANT
     Indication: INSOMNIA
     Route: 065
  17. LOXOPROFEN SODIUM [Concomitant]
     Active Substance: LOXOPROFEN SODIUM
     Indication: DELIRIUM
     Route: 065
  18. LEVOMEPROMAZINE MALEATE [Concomitant]
     Active Substance: LEVOMEPROMAZINE MALEATE
     Indication: DELIRIUM
     Route: 065
  19. PALONOSETRON HYDROCHLORIDE. [Concomitant]
     Active Substance: PALONOSETRON HYDROCHLORIDE
     Indication: NAUSEA
     Route: 065
  20. PYRIDOXINE HYDROCHLORIDE. [Concomitant]
     Active Substance: PYRIDOXINE HYDROCHLORIDE
     Indication: DECREASED APPETITE
     Route: 065
  21. ACETAMINOPHEN. [Concomitant]
     Active Substance: ACETAMINOPHEN
     Indication: ARTHRALGIA
     Route: 065
  22. MORPHINE HYDROCHLORIDE [Concomitant]
     Active Substance: MORPHINE HYDROCHLORIDE
     Indication: COUGH
     Dosage: 5 MILLIGRAM
     Route: 048
     Dates: start: 20170531, end: 20170817
  23. HEPARINOID [Concomitant]
     Active Substance: CHONDROITIN SULFATE (BOVINE)
     Indication: DRY SKIN
     Route: 065
  24. POLYETHYLENE GLYCOL 4000 [Concomitant]
     Active Substance: POLYETHYLENE GLYCOL 4000
     Indication: ENEMA ADMINISTRATION
     Route: 065
  25. SODIUM CHLORIDE. [Concomitant]
     Active Substance: SODIUM CHLORIDE
     Indication: HYPONATRAEMIA
     Route: 065
  26. ABRAXANE [Suspect]
     Active Substance: PACLITAXEL
     Dosage: 100 MILLIGRAM/SQ. METER
     Route: 041
     Dates: start: 20170720
  27. CARBOPLATIN. [Suspect]
     Active Substance: CARBOPLATIN
     Indication: NON-SMALL CELL LUNG CANCER METASTATIC
     Dosage: AUC 6
     Route: 041
     Dates: start: 20170601, end: 20170601
  28. CARBOPLATIN. [Suspect]
     Active Substance: CARBOPLATIN
     Dosage: AUC 6
     Route: 041
     Dates: start: 20170720
  29. ENSURE [Concomitant]
     Active Substance: AMINO ACIDS\DEXTROSE\ELECTROLYTES NOS\SOYBEAN OIL\VITAMINS
     Indication: DECREASED APPETITE
     Dosage: 250 MILLILITER
     Route: 048
     Dates: start: 20170518
  30. PETROLATUM WHITE [Concomitant]
     Indication: DRY SKIN
     Route: 065
  31. RISPERIDONE. [Concomitant]
     Active Substance: RISPERIDONE
     Indication: DELIRIUM
     Route: 065
  32. VONOPRAZAN FUMARATE [Concomitant]
     Active Substance: VONOPRAZAN FUMURATE
     Indication: GASTRIC ULCER
     Route: 065
  33. LIDOCAINE. [Concomitant]
     Active Substance: LIDOCAINE
     Indication: ANAESTHESIA
     Route: 065
  34. DIMETHICONE. [Concomitant]
     Active Substance: DIMETHICONE
     Indication: SECRETION DISCHARGE
     Route: 065
  35. TRIMETHOPRIM. [Concomitant]
     Active Substance: TRIMETHOPRIM
     Indication: INFECTION
     Route: 065
  36. DEXTROMETHORPHAN HYDROBROMIDE. [Concomitant]
     Active Substance: DEXTROMETHORPHAN HYDROBROMIDE
     Indication: COUGH
     Dosage: 2.5 MILLIGRAM
     Route: 048
     Dates: start: 20170518, end: 20170712
  37. GLUCAGON. [Concomitant]
     Active Substance: GLUCAGON
     Indication: PERISTALSIS VISIBLE
     Route: 065
  38. MIDAZOLAM HYDROCHLORIDE. [Concomitant]
     Active Substance: MIDAZOLAM HYDROCHLORIDE
     Indication: SEDATION
     Route: 065
  39. FLUMAZENIL. [Concomitant]
     Active Substance: FLUMAZENIL
     Indication: PRODUCT USED FOR UNKNOWN INDICATION
     Route: 065
  40. CODEINE PHOSPHATE [Concomitant]
     Active Substance: CODEINE PHOSPHATE
     Indication: COUGH
     Dosage: 20 MILLIGRAM
     Route: 048
     Dates: start: 20170411, end: 20170712
  41. LOSARTAN POTASSIUM. [Concomitant]
     Active Substance: LOSARTAN POTASSIUM
     Indication: HYPERTENSION
     Dosage: 5 MILLIGRAM
     Route: 048
     Dates: start: 20170424, end: 20170623
  42. DEQUALINIUM CHLORIDE [Concomitant]
     Active Substance: DEQUALINIUM CHLORIDE
     Indication: COUGH
     Dosage: .25 MILLIGRAM
     Route: 065
     Dates: start: 20170601, end: 20170607
  43. INSULIN LISPRO [Concomitant]
     Active Substance: INSULIN LISPRO
     Indication: DIABETES MELLITUS
     Route: 065
  44. PRONASE [Concomitant]
     Active Substance: PROTEASE
     Indication: SECRETION DISCHARGE
     Route: 065
  45. SULFAMETHOXAZOLE [Concomitant]
     Active Substance: SULFAMETHOXAZOLE
     Indication: INFECTION
     Route: 065

REACTIONS (1)
  - Autoimmune hepatitis [Recovering/Resolving]

NARRATIVE: CASE EVENT DATE: 20170619
